FAERS Safety Report 7573521-0 (Version None)
Quarter: 2011Q2

REPORT INFORMATION
  Report Type: 
  Country: None (occurrence: None)
  Receive Date: 20110627
  Receipt Date: 20110614
  Transmission Date: 20111010
  Serious: Yes (Other)
  Sender: FDA-Public Use
  Company Number: PHHY2011BR53783

PATIENT
  Sex: Female

DRUGS (2)
  1. DIOVAN HCT [Suspect]
     Dosage: 80 MG OF VALSARTAN AND 12.5 G OF HYDROCHLOROTHIAZIDE, ONE IN THE MORNING AND ONE AT NIGHT
  2. DIOVAN HCT [Suspect]
     Dosage: 160 MG VALSARTAN AND 25 MG OF HYDROCHLOROTHIAZIDE, DAILY

REACTIONS (5)
  - KIDNEY SMALL [None]
  - NEPHROLITHIASIS [None]
  - RENAL DISORDER [None]
  - MUSCLE SPASMS [None]
  - BLOOD UREA INCREASED [None]
